FAERS Safety Report 12128126 (Version 1)
Quarter: 2016Q1

REPORT INFORMATION
  Report Type: Spontaneous
  Country: JP (occurrence: JP)
  Receive Date: 20160229
  Receipt Date: 20160229
  Transmission Date: 20160526
  Serious: Yes (Hospitalization)
  Sender: FDA-Public Use
  Company Number: JP-MYLANLABS-2016M1008211

PATIENT

DRUGS (1)
  1. RISEDRONATE [Suspect]
     Active Substance: RISEDRONATE SODIUM
     Indication: OSTEOPOROSIS
     Route: 048

REACTIONS (4)
  - Malnutrition [Recovered/Resolved]
  - Oesophageal ulcer [Recovered/Resolved]
  - Anaemia [Recovered/Resolved]
  - Hiatus hernia [Recovered/Resolved]
